FAERS Safety Report 4875699-6 (Version None)
Quarter: 2006Q1

REPORT INFORMATION
  Report Type: 
  Country: None (occurrence: None)
  Receive Date: 20060109
  Receipt Date: 20051209
  Transmission Date: 20060701
  Serious: Yes (Death)
  Sender: FDA-Public Use
  Company Number: HR-NOVOPROD-249212

PATIENT
  Age: 39 Year
  Sex: Female
  Weight: 65 kg

DRUGS (10)
  1. NOVOSEVEN [Suspect]
     Indication: HAEMORRHAGE
     Dosage: 1.2 MG, SINGLE, ONE BOLUS
     Route: 042
     Dates: start: 20051116, end: 20051116
  2. PLASMA [Concomitant]
     Dosage: 3040 ML, UNK
     Route: 042
     Dates: start: 20051116, end: 20051116
  3. GARAMYCIN [Concomitant]
     Route: 042
     Dates: start: 20051116, end: 20051116
  4. EFLORAN [Concomitant]
     Route: 042
     Dates: start: 20051116, end: 20051116
  5. PENBRITIN [Concomitant]
     Dates: start: 20051116, end: 20051116
  6. KETALAR [Concomitant]
     Route: 042
     Dates: start: 20051116, end: 20051116
  7. NORCURON [Concomitant]
     Route: 042
     Dates: start: 20051116, end: 20051116
  8. ELECTROLYTE SOLUTIONS [Concomitant]
     Route: 042
     Dates: start: 20051116, end: 20051116
  9. DEXTRAN 70 [Concomitant]
     Route: 042
     Dates: start: 20051116, end: 20051116
  10. SUCCINYLCHOLINE CHLORIDE [Concomitant]
     Route: 042
     Dates: start: 20051116, end: 20051116

REACTIONS (1)
  - SHOCK HAEMORRHAGIC [None]
